FAERS Safety Report 7677454-0 (Version None)
Quarter: 2011Q3

REPORT INFORMATION
  Report Type: 
  Country: None (occurrence: None)
  Receive Date: 20110811
  Receipt Date: 20110207
  Transmission Date: 20111222
  Serious: Yes (Other)
  Sender: FDA-Public Use
  Company Number: US-BRISTOL-MYERS SQUIBB COMPANY-15534217

PATIENT
  Sex: Male

DRUGS (3)
  1. REYATAZ [Suspect]
     Route: 065
  2. TRUVADA [Suspect]
  3. NORVIR [Suspect]
     Dosage: NORVIR SOFT GELATIN CAPS
     Route: 065

REACTIONS (2)
  - PANCREATITIS [None]
  - HEPATIC ENZYME INCREASED [None]
